FAERS Safety Report 18576522 (Version 2)
Quarter: 2021Q1

REPORT INFORMATION
  Report Type: Report from Study
  Country: MX (occurrence: MX)
  Receive Date: 20201203
  Receipt Date: 20210119
  Transmission Date: 20210419
  Serious: Yes (Death, Other)
  Sender: FDA-Public Use
  Company Number: MX-SEATTLE GENETICS-2020SGN04534

PATIENT
  Sex: Male

DRUGS (1)
  1. BRENTUXIMAB VEDOTIN [Suspect]
     Active Substance: BRENTUXIMAB VEDOTIN
     Indication: HODGKIN^S DISEASE
     Dosage: 100 MILLIGRAM
     Route: 042
     Dates: start: 20200228, end: 20200914

REACTIONS (4)
  - Respiratory disorder [Fatal]
  - Death [Fatal]
  - Dyspnoea [Unknown]
  - Pneumonia [Fatal]
